FAERS Safety Report 7715470 (Version 2)
Quarter: 2012Q4

REPORT INFORMATION
  Report Type: 
  Country: US (occurrence: US)
  Receive Date: 20101216
  Receipt Date: 20121023
  Transmission Date: 20130627
  Serious: No
  Sender: FDA-Public Use
  Company Number: US-AMGEN-KDL383903

PATIENT
  Age: 70 Year
  Sex: Female
  Weight: 72.11 kg

DRUGS (6)
  1. ENBREL [Suspect]
     Indication: PRODUCT USED FOR UNKNOWN INDICATION
     Dosage: 50 mg, qwk
     Route: 058
  2. SYNTHROID [Concomitant]
     Dosage: UNK
  3. LANTUS [Concomitant]
     Dosage: 100 mg, UNK
  4. METFORMIN [Concomitant]
     Dosage: 500 mg, UNK
     Route: 048
  5. LISINOPRIL [Concomitant]
     Dosage: 10 mg, UNK
     Route: 048
  6. TYLENOL /00020001/ [Concomitant]
     Dosage: 325 mg, UNK

REACTIONS (1)
  - Sinusitis [Unknown]
